FAERS Safety Report 5053272-7 (Version None)
Quarter: 2006Q3

REPORT INFORMATION
  Report Type: 
  Country: None (occurrence: None)
  Receive Date: 20060712
  Receipt Date: 20060626
  Transmission Date: 20061208
  Serious: Yes (Hospitalization)
  Sender: FDA-Public Use
  Company Number: FR-2006-001818

PATIENT
  Age: 30 Year
  Sex: Male

DRUGS (5)
  1. BETAFERON 250 UG, 500 UG AND COPAXONE (BETAFERON (SH Y0367A)) INJECTIO [Suspect]
     Indication: RELAPSING-REMITTING MULTIPLE SCLEROSIS
     Dosage: 8 OR 16 MIU, EVERY 2D, SUBCUTANEOUS
     Route: 058
     Dates: start: 20040603
  2. IBUPROFEN [Concomitant]
  3. YOHIMBINE (YOHIMBINE) [Concomitant]
  4. GURANA (PAULLINIA CUPANA) [Concomitant]
  5. LYCOPODIUM [Concomitant]

REACTIONS (6)
  - EPILEPSY [None]
  - HEAD INJURY [None]
  - HEADACHE [None]
  - PROCEDURAL COMPLICATION [None]
  - SYNCOPE VASOVAGAL [None]
  - VOMITING [None]
